FAERS Safety Report 7639946-X (Version None)
Quarter: 2011Q3

REPORT INFORMATION
  Report Type: 
  Country: None (occurrence: None)
  Receive Date: 20110727
  Receipt Date: 20090805
  Transmission Date: 20111222
  Serious: Yes (Other)
  Sender: FDA-Public Use
  Company Number: PHHY2009GB18926

PATIENT
  Sex: Female

DRUGS (2)
  1. CLOZAPINE [Suspect]
     Route: 048
     Dates: start: 20010503, end: 20080918
  2. CLOZAPINE [Suspect]
     Dosage: 125 MG, QD
     Route: 048
     Dates: start: 20081224, end: 20090511

REACTIONS (3)
  - OROPHARYNGEAL PAIN [None]
  - WHITE BLOOD CELL COUNT DECREASED [None]
  - NEUTROPENIA [None]
